FAERS Safety Report 7980533-1 (Version None)
Quarter: 2011Q4

REPORT INFORMATION
  Report Type: 
  Country: None (occurrence: None)
  Receive Date: 20111214
  Receipt Date: 20111205
  Transmission Date: 20120403
  Serious: Yes (Hospitalization)
  Sender: FDA-Public Use
  Company Number: PT-GLAXOSMITHKLINE-B0768856A

PATIENT
  Age: 47 Year
  Sex: Male

DRUGS (6)
  1. GABAPENTIN [Concomitant]
  2. UNKNOWN DRUG [Concomitant]
  3. INDAPAMIDE [Concomitant]
  4. FOSINOPRIL SODIUM [Concomitant]
  5. OMEPRAZOLE [Concomitant]
  6. VALACICLOVIR [Suspect]
     Indication: HERPES ZOSTER
     Route: 065

REACTIONS (16)
  - DIARRHOEA [None]
  - CHEST PAIN [None]
  - OESOPHAGEAL CANDIDIASIS [None]
  - OEDEMA [None]
  - ABDOMINAL DISTENSION [None]
  - DEHYDRATION [None]
  - LEUKOCYTOSIS [None]
  - ABDOMINAL PAIN [None]
  - DECREASED APPETITE [None]
  - PSEUDOMEMBRANOUS COLITIS [None]
  - DYSPHAGIA [None]
  - CACHEXIA [None]
  - NEUTROPHILIA [None]
  - OEDEMA PERIPHERAL [None]
  - FAECES DISCOLOURED [None]
  - PYREXIA [None]
